FAERS Safety Report 15344906 (Version 2)
Quarter: 2018Q4

REPORT INFORMATION
  Report Type: Report from Study
  Country: FR (occurrence: FR)
  Receive Date: 20180903
  Receipt Date: 20181102
  Transmission Date: 20190204
  Serious: Yes (Hospitalization)
  Sender: FDA-Public Use
  Company Number: FR-PFIZER INC-2018347646

PATIENT
  Age: 52 Year
  Sex: Male
  Weight: 54 kg

DRUGS (4)
  1. FLUOROURACIL. [Suspect]
     Active Substance: FLUOROURACIL
     Indication: COLORECTAL CANCER METASTATIC
     Dosage: UNK UNK, CYCLIC
     Route: 042
     Dates: start: 20180403, end: 20180403
  2. IRINOTECAN HCL [Suspect]
     Active Substance: IRINOTECAN HYDROCHLORIDE
     Indication: COLORECTAL CANCER METASTATIC
     Dosage: UNK UNK, CYCLIC
     Route: 042
     Dates: start: 20180403, end: 20180403
  3. CALCIUM FOLINATE [Suspect]
     Active Substance: LEUCOVORIN CALCIUM
     Indication: COLORECTAL CANCER METASTATIC
     Dosage: UNK UNK, CYCLIC
     Route: 042
     Dates: start: 20180403, end: 20180403
  4. AFLIBERCEPT [Suspect]
     Active Substance: AFLIBERCEPT
     Indication: COLORECTAL CANCER METASTATIC
     Dosage: UNK UNK, CYCLIC
     Route: 042
     Dates: start: 20180403, end: 20180403

REACTIONS (3)
  - General physical health deterioration [Recovered/Resolved]
  - Weight decreased [Not Recovered/Not Resolved]
  - General physical health deterioration [Not Recovered/Not Resolved]

NARRATIVE: CASE EVENT DATE: 20180416
